FAERS Safety Report 15685666 (Version 1)
Quarter: 2018Q4

REPORT INFORMATION
  Report Type: Spontaneous
  Country: US (occurrence: US)
  Receive Date: 20181121
  Receipt Date: 20181121
  Transmission Date: 20190205
  Serious: Yes (Other)
  Sender: FDA-Public Use
  Company Number: None

PATIENT
  Age: 0 Day
  Sex: Male
  Weight: 3.18 kg

DRUGS (6)
  1. LATUDA [Suspect]
     Active Substance: LURASIDONE HYDROCHLORIDE
  2. XANAX [Suspect]
     Active Substance: ALPRAZOLAM
  3. CELEXA [Suspect]
     Active Substance: CITALOPRAM HYDROBROMIDE
  4. NEURONTIN [Suspect]
     Active Substance: GABAPENTIN
  5. FLEXERIL [Suspect]
     Active Substance: CYCLOBENZAPRINE HYDROCHLORIDE
  6. ZOFRAN [Suspect]
     Active Substance: ONDANSETRON HYDROCHLORIDE

REACTIONS (2)
  - Hydrocele [None]
  - Maternal drugs affecting foetus [None]

NARRATIVE: CASE EVENT DATE: 20171106
